FAERS Safety Report 11577067 (Version 2)
Quarter: 2015Q4

REPORT INFORMATION
  Report Type: Spontaneous
  Country: US (occurrence: US)
  Receive Date: 20150930
  Receipt Date: 20151009
  Transmission Date: 20160304
  Serious: Yes (Hospitalization, Other)
  Sender: FDA-Public Use
  Company Number: US-GLAXOSMITHKLINE-US2015138485

PATIENT
  Age: 70 Year
  Sex: Female

DRUGS (3)
  1. PROAIR HFA [Concomitant]
     Active Substance: ALBUTEROL SULFATE
  2. ADVAIR DISKUS [Suspect]
     Active Substance: FLUTICASONE PROPIONATE\SALMETEROL XINAFOATE
     Indication: CHRONIC OBSTRUCTIVE PULMONARY DISEASE
     Dosage: 250/50 MCG, ONE PUFF BID
     Route: 055
     Dates: start: 2005
  3. ALBUTEROL. [Concomitant]
     Active Substance: ALBUTEROL

REACTIONS (2)
  - Pneumonia [Recovering/Resolving]
  - Diabetes mellitus [Unknown]

NARRATIVE: CASE EVENT DATE: 2010
